FAERS Safety Report 7792137-4 (Version None)
Quarter: 2011Q3

REPORT INFORMATION
  Report Type: 
  Country: None (occurrence: None)
  Receive Date: 20110929
  Receipt Date: 20110914
  Transmission Date: 20111222
  Serious: Yes (Other)
  Sender: FDA-Public Use
  Company Number: 2011P1008911

PATIENT
  Age: 58 Year
  Sex: Female
  Weight: 77.1115 kg

DRUGS (9)
  1. ADVIL GEL CAPS (NO PREF. NAME) [Suspect]
     Indication: PAIN
     Dates: end: 20110730
  2. ETODOLAC [Suspect]
     Indication: INFLAMMATION
     Dosage: 200 MG
     Dates: end: 20110701
  3. PREMARIN [Suspect]
     Dosage: 0.625 MG ; 0.3 MG ; 0.625 MG
  4. ULTRA (NO PREF. NAME) [Suspect]
     Indication: PAIN
     Dates: end: 20110701
  5. LYRICA [Suspect]
     Indication: NEURALGIA
     Dosage: 300 MG;BID;PO ; 50 MG;PO ; 100 MG;PO ; 150 MG;PO ; 200 MG;PO
     Route: 048
     Dates: start: 20091201
  6. LYRICA [Suspect]
     Indication: NEURALGIA
     Dosage: 300 MG;BID;PO ; 50 MG;PO ; 100 MG;PO ; 150 MG;PO ; 200 MG;PO
     Route: 048
     Dates: end: 20100701
  7. LYRICA [Suspect]
     Indication: NEURALGIA
     Dosage: 300 MG;BID;PO ; 50 MG;PO ; 100 MG;PO ; 150 MG;PO ; 200 MG;PO
     Route: 048
     Dates: start: 20110731, end: 20110731
  8. LYRICA [Suspect]
     Indication: NEURALGIA
     Dosage: 300 MG;BID;PO ; 50 MG;PO ; 100 MG;PO ; 150 MG;PO ; 200 MG;PO
     Route: 048
     Dates: start: 20110802
  9. LYRICA [Suspect]
     Indication: NEURALGIA
     Dosage: 300 MG;BID;PO ; 50 MG;PO ; 100 MG;PO ; 150 MG;PO ; 200 MG;PO
     Route: 048
     Dates: start: 20110801, end: 20110801

REACTIONS (12)
  - MENTAL DISORDER [None]
  - DISTURBANCE IN ATTENTION [None]
  - OEDEMA PERIPHERAL [None]
  - DYSPNOEA [None]
  - NEURALGIA [None]
  - URTICARIA [None]
  - ERYTHEMA [None]
  - DIABETES MELLITUS [None]
  - TENDON RUPTURE [None]
  - RASH [None]
  - PRURITUS [None]
  - DIZZINESS [None]
